FAERS Safety Report 8917184 (Version 1)
Quarter: 2012Q4

REPORT INFORMATION
  Report Type: 
  Country: US (occurrence: US)
  Receive Date: 20121120
  Receipt Date: 20121120
  Transmission Date: 20130627
  Serious: Yes (Life-Threatening, Hospitalization, Other)
  Sender: FDA-Public Use
  Company Number: US-TARO-2012P1064754

PATIENT
  Age: 65 Year
  Sex: Female

DRUGS (2)
  1. WARFARIN [Suspect]
  2. ENOXAPARIN [Suspect]

REACTIONS (10)
  - Abdominal wall haematoma [Unknown]
  - Ileal perforation [Unknown]
  - Anaemia [Unknown]
  - Respiratory failure [Unknown]
  - Pneumonia [Unknown]
  - Large intestine perforation [Unknown]
  - Deep vein thrombosis [Unknown]
  - Hypotension [Unknown]
  - Abdominal pain [Unknown]
  - Blood creatinine increased [Unknown]
